FAERS Safety Report 7770972-6 (Version None)
Quarter: 2011Q3

REPORT INFORMATION
  Report Type: 
  Country: None (occurrence: None)
  Receive Date: 20110922
  Receipt Date: 20110124
  Transmission Date: 20111222
  Serious: Yes (Hospitalization)
  Sender: FDA-Public Use
  Company Number: US-ASTRAZENECA-2011SE04058

PATIENT
  Age: 18 Year
  Sex: Male

DRUGS (3)
  1. VYVANSE [Concomitant]
     Route: 048
  2. SEROQUEL XR [Suspect]
     Indication: BIPOLAR DISORDER
     Route: 048
  3. SEROQUEL XR [Suspect]
     Dosage: 10 TABLET AT ONCE
     Route: 048
     Dates: start: 20110123

REACTIONS (1)
  - OVERDOSE [None]
